FAERS Safety Report 11204543 (Version 3)
Quarter: 2015Q4

REPORT INFORMATION
  Report Type: Report from Study
  Country: ES (occurrence: ES)
  Receive Date: 20150622
  Receipt Date: 20151015
  Transmission Date: 20160304
  Serious: Yes (Hospitalization)
  Sender: FDA-Public Use
  Company Number: ES-ROCHE-1596526

PATIENT
  Age: 75 Year
  Sex: Male
  Weight: 93 kg

DRUGS (4)
  1. AVASTIN [Suspect]
     Active Substance: BEVACIZUMAB
     Indication: COLORECTAL CANCER
     Route: 065
     Dates: start: 20140812, end: 20141117
  2. FOLINIC ACID [Suspect]
     Active Substance: LEUCOVORIN
     Indication: COLORECTAL CANCER
     Dosage: DATE OF LAST DOSE PRIOR TO SAE: 17/NOV/2014
     Route: 065
  3. OXALIPLATIN. [Suspect]
     Active Substance: OXALIPLATIN
     Indication: COLORECTAL CANCER
     Dosage: DATE OF LAST DOSE PRIOR TO SAE: 17/NOV/2014
     Route: 065
  4. FLUOROURACIL. [Suspect]
     Active Substance: FLUOROURACIL
     Indication: COLORECTAL CANCER
     Dosage: DATE OF LAST DOSE PRIOR TO SAE: 17/NOV/2014
     Route: 065

REACTIONS (3)
  - Acute respiratory failure [Recovered/Resolved]
  - Disease progression [Unknown]
  - Drug ineffective [Unknown]

NARRATIVE: CASE EVENT DATE: 20141201
